FAERS Safety Report 10179526 (Version 1)
Quarter: 2014Q2

REPORT INFORMATION
  Report Type: Spontaneous
  Country: US (occurrence: US)
  Receive Date: 20140519
  Receipt Date: 20140519
  Transmission Date: 20141212
  Serious: No
  Sender: FDA-Public Use
  Company Number: US-SHIRE-US201402278

PATIENT
  Age: 11 Year
  Sex: Male

DRUGS (3)
  1. VYVANSE [Suspect]
     Indication: PRODUCT USED FOR UNKNOWN INDICATION
     Dosage: 30 MG, UNKNOWN
     Route: 048
  2. VYVANSE [Suspect]
     Dosage: 20 MG, UNKNOWN
     Route: 048
  3. RISPERDAL [Concomitant]
     Indication: PRODUCT USED FOR UNKNOWN INDICATION
     Dosage: UNK, UNKNOWN
     Route: 065

REACTIONS (3)
  - Chest pain [Recovered/Resolved]
  - Nonspecific reaction [Unknown]
  - Blood pressure increased [Recovered/Resolved]
